FAERS Safety Report 13160886 (Version 2)
Quarter: 2017Q1

REPORT INFORMATION
  Report Type: Spontaneous
  Country: US (occurrence: US)
  Receive Date: 20170130
  Receipt Date: 20170213
  Transmission Date: 20170428
  Serious: No
  Sender: FDA-Public Use
  Company Number: US-TAIHO ONCOLOGY INC-EU-2017-00067

PATIENT
  Sex: Female

DRUGS (6)
  1. LOSARTAN POTASSIUM. [Concomitant]
     Active Substance: LOSARTAN POTASSIUM
     Dosage: NI
  2. ATENOLOL. [Concomitant]
     Active Substance: ATENOLOL
     Dosage: NI
  3. PROTONIX [Concomitant]
     Active Substance: PANTOPRAZOLE SODIUM
     Dosage: NI
  4. LONSURF [Suspect]
     Active Substance: TIPIRACIL HYDROCHLORIDE\TRIFLURIDINE
     Indication: COLON CANCER
     Route: 048
     Dates: start: 20161206
  5. PROCARDIA XL [Concomitant]
     Active Substance: NIFEDIPINE
     Dosage: NI
  6. LEVOTHYROXINE. [Concomitant]
     Active Substance: LEVOTHYROXINE
     Dosage: NI

REACTIONS (2)
  - Fatigue [Unknown]
  - Diarrhoea [Not Recovered/Not Resolved]
